FAERS Safety Report 7788431-3 (Version None)
Quarter: 2011Q3

REPORT INFORMATION
  Report Type: 
  Country: None (occurrence: None)
  Receive Date: 20110927
  Receipt Date: 20110915
  Transmission Date: 20111222
  Serious: Yes (Other)
  Sender: FDA-Public Use
  Company Number: 2011SP043672

PATIENT
  Sex: Male

DRUGS (1)
  1. NASONEX [Suspect]
     Indication: SEASONAL ALLERGY

REACTIONS (1)
  - INTRAOCULAR PRESSURE INCREASED [None]
